FAERS Safety Report 9931107 (Version 1)
Quarter: 2014Q1

REPORT INFORMATION
  Report Type: Spontaneous
  Country: AU (occurrence: AU)
  Receive Date: 20140227
  Receipt Date: 20140227
  Transmission Date: 20141002
  Serious: Yes (Other)
  Sender: FDA-Public Use
  Company Number: AU-BRISTOL-MYERS SQUIBB COMPANY-20315784

PATIENT
  Sex: 0

DRUGS (1)
  1. DASATINIB [Suspect]
     Route: 064

REACTIONS (2)
  - Hydrops foetalis [Unknown]
  - Hepatomegaly [Unknown]
